FAERS Safety Report 9124437 (Version 1)
Quarter: 2013Q1

REPORT INFORMATION
  Report Type: Spontaneous
  Country: DK (occurrence: FR)
  Receive Date: 20130116
  Receipt Date: 20130116
  Transmission Date: 20140127
  Serious: Yes (Hospitalization)
  Sender: FDA-Public Use
  Company Number: FR-FRI-1000041626

PATIENT
  Age: 29 Year
  Sex: Female

DRUGS (1)
  1. ESCITALOPRAM [Suspect]
     Indication: POSTPARTUM DEPRESSION
     Dosage: 10 MG
     Route: 048
     Dates: start: 20121125, end: 20121128

REACTIONS (4)
  - Dysphagia [Recovered/Resolved]
  - Pharyngeal oedema [Recovered/Resolved]
  - Cervix oedema [Recovered/Resolved]
  - Tongue oedema [Recovered/Resolved]
